FAERS Safety Report 8074100-1 (Version None)
Quarter: 2012Q1

REPORT INFORMATION
  Report Type: 
  Country: None (occurrence: None)
  Receive Date: 20120119
  Receipt Date: 20120111
  Transmission Date: 20120608
  Serious: Yes (Death)
  Sender: FDA-Public Use
  Company Number: 2012-CA-0001

PATIENT
  Age: 86 Year
  Sex: Female

DRUGS (4)
  1. FENTANYL [Suspect]
     Indication: BREAKTHROUGH PAIN
     Dosage: 300 MCG 3 TO 4 TIMES DAILY
     Route: 060
     Dates: start: 20111001, end: 20111201
  2. FENTANYL CITRATE [Concomitant]
  3. NAPROXEN [Concomitant]
  4. CYMBALTA [Concomitant]

REACTIONS (1)
  - DEATH [None]
